FAERS Safety Report 17076356 (Version 1)
Quarter: 2019Q4

REPORT INFORMATION
  Report Type: Spontaneous
  Country: FR (occurrence: FR)
  Receive Date: 20191126
  Receipt Date: 20191126
  Transmission Date: 20200122
  Serious: Yes (Other)
  Sender: FDA-Public Use
  Company Number: FR-MYLANLABS-2019M1114082

PATIENT
  Age: 65 Year
  Sex: Female

DRUGS (2)
  1. ZECLAR [Suspect]
     Active Substance: CLARITHROMYCIN
     Indication: INFECTION
     Dosage: 1 DOSAGE FORM, TOTAL
     Route: 048
     Dates: start: 2017, end: 2017
  2. ROVAMYCINE                         /00074401/ [Suspect]
     Active Substance: SPIRAMYCIN
     Indication: INFECTION
     Dosage: 1 DOSAGE FORM, TOTAL
     Route: 048
     Dates: start: 2017, end: 2017

REACTIONS (2)
  - Anaphylactoid reaction [Recovered/Resolved]
  - Gastrointestinal disorder [Recovered/Resolved]

NARRATIVE: CASE EVENT DATE: 2017
